FAERS Safety Report 18971711 (Version 1)
Quarter: 2021Q1

REPORT INFORMATION
  Report Type: Spontaneous
  Country: US (occurrence: US)
  Receive Date: 20210304
  Receipt Date: 20210304
  Transmission Date: 20210420
  Serious: No
  Sender: FDA-Public Use
  Company Number: US-JNJFOC-20210300833

PATIENT
  Sex: Female

DRUGS (1)
  1. IMODIUM MULTI?SYMPTOM RELIEF [Suspect]
     Active Substance: DIMETHICONE\LOPERAMIDE HYDROCHLORIDE
     Indication: DIARRHOEA
     Dosage: JUST TOOK 1 LAST NIGHT. JUST ONCE, LAST NIGTH
     Route: 048
     Dates: start: 20210225

REACTIONS (2)
  - Dysphagia [Recovered/Resolved]
  - Product size issue [Unknown]

NARRATIVE: CASE EVENT DATE: 20210225
